FAERS Safety Report 20044043 (Version 5)
Quarter: 2024Q3

REPORT INFORMATION
  Report Type: Report from Study
  Country: US (occurrence: US)
  Receive Date: 20211108
  Receipt Date: 20240925
  Transmission Date: 20241016
  Serious: No
  Sender: GLAXOSMITHKLINE
  Company Number: US-GLAXOSMITHKLINE-US2021AMR227254

PATIENT
  Sex: Female
  Weight: 74.376 kg

DRUGS (2)
  1. NIRAPARIB [Suspect]
     Active Substance: NIRAPARIB
     Indication: Ovarian cancer
     Dosage: 200 MG, QD
     Route: 048
     Dates: start: 202110, end: 202112
  2. NIRAPARIB [Suspect]
     Active Substance: NIRAPARIB
     Dosage: 100 MG, QD
     Route: 048
     Dates: start: 20220107

REACTIONS (9)
  - Anaemia [Recovered/Resolved]
  - Fatigue [Recovered/Resolved]
  - Full blood count abnormal [Recovering/Resolving]
  - Tumour marker increased [Not Recovered/Not Resolved]
  - Mass [Unknown]
  - Disease progression [Unknown]
  - Haemoglobin decreased [Unknown]
  - Haematocrit decreased [Unknown]
  - Off label use [Not Recovered/Not Resolved]
